FAERS Safety Report 7413058-2 (Version None)
Quarter: 2011Q2

REPORT INFORMATION
  Report Type: 
  Country: None (occurrence: None)
  Receive Date: 20110413
  Receipt Date: 20110401
  Transmission Date: 20111010
  Serious: Yes (Death)
  Sender: FDA-Public Use
  Company Number: US-ACTELION-A-NJ2011-46128

PATIENT

DRUGS (2)
  1. TRACLEER [Suspect]
     Indication: PULMONARY ARTERIAL HYPERTENSION
     Dosage: UNK
     Route: 048
     Dates: start: 20080826, end: 20110309
  2. CALCIUM CHANNEL BLOCKERS [Concomitant]

REACTIONS (2)
  - ARRHYTHMIA [None]
  - POST PROCEDURAL COMPLICATION [None]
